FAERS Safety Report 25037606 (Version 5)
Quarter: 2025Q3

REPORT INFORMATION
  Report Type: Report from Study
  Country: BR (occurrence: BR)
  Receive Date: 20250304
  Receipt Date: 20250917
  Transmission Date: 20251021
  Serious: Yes (Hospitalization, Other)
  Sender: TAKEDA
  Company Number: BR-TAKEDA-2025TUS012472

PATIENT
  Age: 53 Year
  Sex: Female

DRUGS (2)
  1. VEDOLIZUMAB [Suspect]
     Active Substance: VEDOLIZUMAB
     Indication: Crohn^s disease
  2. TOPIRAMATE [Concomitant]
     Active Substance: TOPIRAMATE
     Indication: Brain neoplasm benign
     Dosage: UNK UNK, QD

REACTIONS (4)
  - Crohn^s disease [Unknown]
  - Inappropriate schedule of product administration [Recovered/Resolved]
  - Product distribution issue [Unknown]
  - Product availability issue [Unknown]

NARRATIVE: CASE EVENT DATE: 20250121
